FAERS Safety Report 17974309 (Version 1)
Quarter: 2020Q3

REPORT INFORMATION
  Report Type: Spontaneous
  Country: US (occurrence: US)
  Receive Date: 20200702
  Receipt Date: 20200702
  Transmission Date: 20201103
  Serious: Yes (Other)
  Sender: FDA-Public Use
  Company Number: US-PFIZER INC-2020253484

PATIENT

DRUGS (3)
  1. PREGABALIN. [Suspect]
     Active Substance: PREGABALIN
     Indication: HERPES ZOSTER
     Dosage: UNK
  2. PREGABALIN. [Suspect]
     Active Substance: PREGABALIN
     Indication: HEADACHE
  3. PREGABALIN. [Suspect]
     Active Substance: PREGABALIN
     Indication: PAIN

REACTIONS (5)
  - Facial paresis [Unknown]
  - Speech disorder [Unknown]
  - Cerebrovascular disorder [Unknown]
  - Drug ineffective [Unknown]
  - Eye disorder [Unknown]
